FAERS Safety Report 7575669-3 (Version None)
Quarter: 2011Q2

REPORT INFORMATION
  Report Type: 
  Country: None (occurrence: None)
  Receive Date: 20110628
  Receipt Date: 20110615
  Transmission Date: 20111010
  Serious: Yes (Death)
  Sender: FDA-Public Use
  Company Number: BE-BIOGENIDEC-2011BI006411

PATIENT
  Age: 32 Year
  Sex: Male

DRUGS (1)
  1. TYSABRI [Suspect]
     Indication: MULTIPLE SCLEROSIS
     Route: 042
     Dates: start: 20100906, end: 20101103

REACTIONS (6)
  - SEPSIS [None]
  - JC VIRUS TEST [None]
  - NUCLEAR MAGNETIC RESONANCE IMAGING ABNORMAL [None]
  - GRAND MAL CONVULSION [None]
  - MUSCLE CONTRACTURE [None]
  - GENERAL PHYSICAL HEALTH DETERIORATION [None]
